FAERS Safety Report 14269392 (Version 1)
Quarter: 2017Q4

REPORT INFORMATION
  Report Type: Spontaneous
  Country: JP (occurrence: JP)
  Receive Date: 20171211
  Receipt Date: 20171211
  Transmission Date: 20180321
  Serious: Yes (Other)
  Sender: FDA-Public Use
  Company Number: JP-OTSUKA-2016_012014

PATIENT
  Age: 41 Year
  Sex: Male

DRUGS (14)
  1. SEROQUEL [Suspect]
     Active Substance: QUETIAPINE FUMARATE
     Dosage: 2T (200) + 1T (100), QD
     Route: 048
     Dates: start: 20141224, end: 20150716
  2. QUETIAPINE. [Suspect]
     Active Substance: QUETIAPINE
     Dosage: 1T (200) + 1T (100), QD
     Route: 048
     Dates: start: 20150717, end: 20160527
  3. LIVALO [Concomitant]
     Active Substance: PITAVASTATIN CALCIUM
     Indication: PRODUCT USED FOR UNKNOWN INDICATION
     Dosage: 1 DF, QD, 1 TABLET (2)
     Route: 048
     Dates: start: 20160122, end: 20160408
  4. SEROQUEL [Suspect]
     Active Substance: QUETIAPINE FUMARATE
     Indication: PRODUCT USED FOR UNKNOWN INDICATION
     Dosage: 1T (200) + 1T (100), QD
     Route: 048
     Dates: start: 20150717, end: 20160527
  5. SEROQUEL [Suspect]
     Active Substance: QUETIAPINE FUMARATE
     Dosage: 2T (200) + 1T (100), QD
     Route: 048
     Dates: start: 20140828, end: 20141015
  6. QUETIAPINE. [Suspect]
     Active Substance: QUETIAPINE
     Dosage: 2T (200) + 1T (100), QD
     Route: 048
     Dates: start: 20141224, end: 20150716
  7. SEROQUEL [Suspect]
     Active Substance: QUETIAPINE FUMARATE
     Dosage: 1T (200) + 1T (100), QD
     Route: 048
     Dates: start: 2014, end: 20140827
  8. SEROQUEL [Suspect]
     Active Substance: QUETIAPINE FUMARATE
     Dosage: 2T (200), QD
     Route: 048
     Dates: start: 20141016, end: 20141223
  9. BELSOMRA [Concomitant]
     Active Substance: SUVOREXANT
     Indication: PRODUCT USED FOR UNKNOWN INDICATION
     Route: 065
  10. QUETIAPINE. [Suspect]
     Active Substance: QUETIAPINE
     Dosage: 2T (200) + 1T (100), QD
     Route: 048
     Dates: start: 20140828, end: 20141015
  11. QUETIAPINE. [Suspect]
     Active Substance: QUETIAPINE
     Dosage: 2T (200), QD
     Route: 048
     Dates: start: 20141016, end: 20141223
  12. ABILIFY [Suspect]
     Active Substance: ARIPIPRAZOLE
     Indication: SCHIZOPHRENIA
     Dosage: 15 MG (12MG + 3MG), QD
     Route: 048
     Dates: start: 20150716, end: 20160527
  13. ABILIFY [Suspect]
     Active Substance: ARIPIPRAZOLE
     Dosage: 12 MG, QD
     Route: 048
     Dates: start: 2013, end: 20150717
  14. QUETIAPINE. [Suspect]
     Active Substance: QUETIAPINE
     Indication: PRODUCT USED FOR UNKNOWN INDICATION
     Dosage: 1T (200) + 1T (100), QD
     Route: 048
     Dates: start: 2014, end: 20140827

REACTIONS (1)
  - Rhabdomyolysis [Recovering/Resolving]

NARRATIVE: CASE EVENT DATE: 20160408
